FAERS Safety Report 19404356 (Version 1)
Quarter: 2021Q2

REPORT INFORMATION
  Report Type: Spontaneous
  Country: US (occurrence: US)
  Receive Date: 20210611
  Receipt Date: 20210611
  Transmission Date: 20210717
  Serious: Yes (Other)
  Sender: FDA-Public Use
  Company Number: None

PATIENT
  Age: 27 Year
  Sex: Female
  Weight: 49.5 kg

DRUGS (20)
  1. GABAPENTIN. [Concomitant]
     Active Substance: GABAPENTIN
  2. MORPHINE [Concomitant]
     Active Substance: MORPHINE
  3. DIPHENOXYLATE?ATROPINE [Concomitant]
     Active Substance: ATROPINE\DIPHENOXYLATE
  4. LEVOTHYROXINE. [Concomitant]
     Active Substance: LEVOTHYROXINE
  5. LOW?OGESTREL [Concomitant]
     Active Substance: ETHINYL ESTRADIOL\NORGESTREL
  6. ONDANSETRON [Concomitant]
     Active Substance: ONDANSETRON
  7. PEGFILGRASTIM [Concomitant]
     Active Substance: PEGFILGRASTIM
  8. DOXORUBICIN LIPOSOME [Suspect]
     Active Substance: DOXORUBICIN
     Indication: EWING^S SARCOMA
     Dosage: ?          OTHER FREQUENCY:ONCE;?
     Route: 042
  9. DIPHENHYDRAMINE. [Concomitant]
     Active Substance: DIPHENHYDRAMINE
  10. HEPARIN [Concomitant]
     Active Substance: HEPARIN SODIUM
  11. DEXAMETHASONE. [Concomitant]
     Active Substance: DEXAMETHASONE
  12. SCOPOLAMINE PATCH [Concomitant]
     Active Substance: SCOPOLAMINE
  13. LOPERAMIDE [Concomitant]
     Active Substance: LOPERAMIDE
  14. LORAZEPAM. [Concomitant]
     Active Substance: LORAZEPAM
  15. CEFDINIR. [Concomitant]
     Active Substance: CEFDINIR
  16. LIDOCAINE?PRILOCAINE [Concomitant]
     Active Substance: LIDOCAINE\PRILOCAINE
  17. TEMOZOLOMIDE. [Concomitant]
     Active Substance: TEMOZOLOMIDE
  18. ZOLEDRONIC ACID [Concomitant]
     Active Substance: ZOLEDRONIC ACID
  19. ADDERALL [Concomitant]
     Active Substance: AMPHETAMINE ASPARTATE\AMPHETAMINE SULFATE\DEXTROAMPHETAMINE SACCHARATE\DEXTROAMPHETAMINE SULFATE
  20. PROPCHLORPERAZINE [Concomitant]

REACTIONS (3)
  - Chest discomfort [None]
  - Palpitations [None]
  - Dyspnoea [None]
